FAERS Safety Report 8616774-X (Version None)
Quarter: 2012Q3

REPORT INFORMATION
  Report Type: 
  Country: None (occurrence: None)
  Receive Date: 20120823
  Receipt Date: 20120820
  Transmission Date: 20120928
  Serious: Yes (Death, Other)
  Sender: FDA-Public Use
  Company Number: US-ABBOTT-12P-163-0970367-00

PATIENT
  Sex: Male
  Weight: 61.29 kg

DRUGS (9)
  1. MARINOL [Concomitant]
     Indication: PRODUCT USED FOR UNKNOWN INDICATION
     Dates: end: 20120816
  2. VICODIN [Concomitant]
     Indication: PAIN
     Dates: end: 20120816
  3. LUPRON DEPOT [Suspect]
     Indication: PROSTATE CANCER
     Route: 050
     Dates: start: 20120101, end: 20120601
  4. PROMETHAZINE [Concomitant]
     Indication: NAUSEA
     Dates: end: 20120816
  5. ONDANSETRON [Concomitant]
     Indication: NAUSEA
     Dates: end: 20120816
  6. UNKNOWN CHEMOTHERAPY [Concomitant]
     Indication: PROSTATE CANCER
     Dates: start: 20120101, end: 20120101
  7. GLEEVEC [Concomitant]
     Indication: CHRONIC MYELOID LEUKAEMIA
     Dates: end: 20120816
  8. BICALTAMIDE [Concomitant]
     Indication: PRODUCT USED FOR UNKNOWN INDICATION
     Dates: start: 20120601, end: 20120701
  9. EXGEVA [Concomitant]
     Indication: PRODUCT USED FOR UNKNOWN INDICATION
     Dates: start: 20120601, end: 20120701

REACTIONS (3)
  - METASTASES TO BONE [None]
  - PROSTATE CANCER METASTATIC [None]
  - PROSTATIC SPECIFIC ANTIGEN INCREASED [None]
